FAERS Safety Report 10822663 (Version 1)
Quarter: 2015Q1

REPORT INFORMATION
  Report Type: Spontaneous
  Country: US (occurrence: US)
  Receive Date: 20150218
  Receipt Date: 20150218
  Transmission Date: 20150721
  Serious: Yes (Other)
  Sender: FDA-Public Use
  Company Number: US-B.I. PHARMACEUTICALS,INC./RIDGEFIELD-2015-BI-07653BP

PATIENT
  Age: 54 Year
  Sex: Male

DRUGS (11)
  1. MELOXICAM. [Suspect]
     Active Substance: MELOXICAM
     Indication: PAIN
     Dosage: 15 MG
     Route: 065
     Dates: start: 20140717
  2. MELOXICAM. [Suspect]
     Active Substance: MELOXICAM
     Dosage: 7.5 MG
     Route: 065
  3. VICODIN [Concomitant]
     Active Substance: ACETAMINOPHEN\HYDROCODONE BITARTRATE
     Indication: PRODUCT USED FOR UNKNOWN INDICATION
     Dosage: DAILY DOSE: WEANING OFF
     Route: 065
     Dates: end: 201405
  4. HUMIRA [Suspect]
     Active Substance: ADALIMUMAB
     Indication: PSORIATIC ARTHROPATHY
     Dosage: 2.8571 MG
     Route: 065
     Dates: start: 20140127
  5. HUMIRA [Suspect]
     Active Substance: ADALIMUMAB
     Indication: CROHN^S DISEASE
  6. PRILOSEC [Concomitant]
     Active Substance: OMEPRAZOLE MAGNESIUM
     Indication: PRODUCT USED FOR UNKNOWN INDICATION
     Dosage: 20 MG
     Route: 065
  7. HUMIRA [Suspect]
     Active Substance: ADALIMUMAB
     Indication: PSORIASIS
  8. GABAPENTIN. [Concomitant]
     Active Substance: GABAPENTIN
     Indication: PRODUCT USED FOR UNKNOWN INDICATION
     Route: 065
     Dates: start: 201405
  9. GABAPENTIN. [Concomitant]
     Active Substance: GABAPENTIN
     Dosage: DOSE PER APPLICATION: 2 TABS IN AM, 1 TAB IN AFTERNOON, 2 TABS AT BEDTIME; DAILY DOSE: 5 TABS
     Route: 065
     Dates: start: 201406
  10. PROVENTIL [Concomitant]
     Active Substance: ALBUTEROL
     Indication: PRODUCT USED FOR UNKNOWN INDICATION
     Route: 065
  11. FLOVENT [Concomitant]
     Active Substance: FLUTICASONE PROPIONATE
     Indication: PRODUCT USED FOR UNKNOWN INDICATION
     Dosage: 88 MG
     Route: 065
     Dates: start: 2012

REACTIONS (14)
  - Myofascial pain syndrome [Unknown]
  - Emphysema [Unknown]
  - Nausea [Unknown]
  - Lipoma [Recovered/Resolved]
  - Neck pain [Not Recovered/Not Resolved]
  - Pulmonary mass [Unknown]
  - Wound dehiscence [Unknown]
  - Back pain [Not Recovered/Not Resolved]
  - Incision site swelling [Unknown]
  - Fatigue [Unknown]
  - Axillary pain [Unknown]
  - Abdominal discomfort [Unknown]
  - Staphylococcal infection [Unknown]
  - Feeling of body temperature change [Unknown]

NARRATIVE: CASE EVENT DATE: 2014
